FAERS Safety Report 7316350-5 (Version None)
Quarter: 2011Q1

REPORT INFORMATION
  Report Type: 
  Country: None (occurrence: None)
  Receive Date: 20110225
  Receipt Date: 20110216
  Transmission Date: 20110831
  Serious: Yes (Hospitalization)
  Sender: FDA-Public Use
  Company Number: US-ASTRAZENECA-2011SE09060

PATIENT
  Age: 47 Year
  Sex: Male
  Weight: 101.2 kg

DRUGS (1)
  1. SEROQUEL XR [Suspect]
     Indication: INSOMNIA
     Route: 048

REACTIONS (1)
  - SURGERY [None]
